FAERS Safety Report 24905088 (Version 2)
Quarter: 2025Q1

REPORT INFORMATION
  Report Type: Report from Study
  Country: DE (occurrence: DE)
  Receive Date: 20250130
  Receipt Date: 20250213
  Transmission Date: 20250409
  Serious: Yes (Other)
  Sender: TEVA
  Company Number: DE-TEVA-VS-3290231

PATIENT
  Age: 71 Year
  Sex: Male

DRUGS (3)
  1. PREDNISOLONE [Suspect]
     Active Substance: PREDNISOLONE
     Indication: Giant cell arteritis
     Route: 065
     Dates: start: 2015, end: 2016
  2. METHOTREXATE [Concomitant]
     Active Substance: METHOTREXATE
     Indication: Giant cell arteritis
     Route: 065
     Dates: start: 201510, end: 2016
  3. MYCOPHENOLATE MOFETIL [Suspect]
     Active Substance: MYCOPHENOLATE MOFETIL
     Indication: Giant cell arteritis
     Route: 065
     Dates: start: 201603, end: 202107

REACTIONS (3)
  - Type 2 diabetes mellitus [Unknown]
  - Steroid diabetes [Unknown]
  - Off label use [Unknown]

NARRATIVE: CASE EVENT DATE: 20160301
